FAERS Safety Report 9825811 (Version 1)
Quarter: 2013Q4

REPORT INFORMATION
  Report Type: Spontaneous
  Country: US (occurrence: None)
  Receive Date: 20131104
  Receipt Date: 20131104
  Transmission Date: 20140711
  Serious: No
  Sender: FDA-Public Use
  Company Number: 1000048483

PATIENT
  Age: 75 Year
  Sex: Female

DRUGS (5)
  1. DALIRESP [Suspect]
     Indication: CHRONIC OBSTRUCTIVE PULMONARY DISEASE
     Dosage: 500 MCG (500 MCG, 1 IN 1 D), ORAL
     Route: 048
     Dates: start: 201305
  2. METFORMIN (METFORMIN) [Suspect]
     Dates: end: 2013
  3. BUDESONIDE (BUDESONIDE) [Concomitant]
  4. BROVANA (ARFORMOTEROL TARTRATE) [Concomitant]
  5. VENTOLIN (ALBUTEROL) (ALBUTEROL) [Concomitant]

REACTIONS (1)
  - Diarrhoea [None]
